FAERS Safety Report 9029098 (Version 2)
Quarter: 2013Q2

REPORT INFORMATION
  Report Type: Spontaneous
  Country: US (occurrence: US)
  Receive Date: 20130122
  Receipt Date: 20130401
  Transmission Date: 20140414
  Serious: Yes (Life-Threatening, Congenital Anomaly, Other)
  Sender: FDA-Public Use
  Company Number: US-PFIZER INC-2013022311

PATIENT
  Sex: Male

DRUGS (3)
  1. ZOLOFT [Suspect]
     Dosage: UNK
     Route: 064
     Dates: start: 2000, end: 2001
  2. PRENATAL VITAMINS [Concomitant]
     Dosage: UNK
     Route: 064
  3. B-6 SHOTS [Concomitant]
     Dosage: UNK
     Route: 064

REACTIONS (7)
  - Maternal exposure timing unspecified [Unknown]
  - Coarctation of the aorta [Unknown]
  - Heart disease congenital [Unknown]
  - Congenital anomaly [Unknown]
  - Congenital aortic anomaly [Unknown]
  - Patent ductus arteriosus [Unknown]
  - Ventricular septal defect [Unknown]
